FAERS Safety Report 22384404 (Version 3)
Quarter: 2023Q2

REPORT INFORMATION
  Report Type: Report from Study
  Country: CA (occurrence: CA)
  Receive Date: 20230530
  Receipt Date: 20230627
  Transmission Date: 20230721
  Serious: Yes (Other)
  Sender: FDA-Public Use
  Company Number: CA-ABBVIE-5182217

PATIENT
  Sex: Male

DRUGS (1)
  1. RINVOQ [Suspect]
     Active Substance: UPADACITINIB
     Indication: Psoriatic arthropathy
     Dosage: LAST DATE ADMINISTRATION: 2023
     Route: 048
     Dates: start: 20230502

REACTIONS (4)
  - Bursitis infective [Not Recovered/Not Resolved]
  - Post procedural drainage [Not Recovered/Not Resolved]
  - Chest pain [Unknown]
  - Impaired healing [Unknown]

NARRATIVE: CASE EVENT DATE: 20230101
